FAERS Safety Report 4537088-3 (Version None)
Quarter: 2004Q4

REPORT INFORMATION
  Report Type: 
  Country: None (occurrence: None)
  Receive Date: 20041223
  Receipt Date: 20041102
  Transmission Date: 20050328
  Serious: Yes (Hospitalization)
  Sender: FDA-Public Use
  Company Number: JP-GLAXOSMITHKLINE-B0350588A

PATIENT
  Age: 54 Year
  Sex: Male
  Weight: 70 kg

DRUGS (13)
  1. VALTREX [Suspect]
     Indication: HERPES ZOSTER
     Route: 048
     Dates: start: 20041028, end: 20041101
  2. PRERAN [Concomitant]
     Indication: HYPERTENSION
     Dosage: 2MG PER DAY
     Route: 048
  3. ADALAT [Concomitant]
     Indication: HYPERTENSION
     Dosage: 80MG PER DAY
     Route: 048
  4. CARDENALIN [Concomitant]
     Indication: HYPERTENSION
     Dosage: 8MG PER DAY
     Route: 048
  5. LANSOPRAZOLE [Concomitant]
     Indication: GASTRIC ULCER HAEMORRHAGE
     Dosage: 30MG PER DAY
     Route: 048
     Dates: start: 20041009
  6. POLARAMINE [Concomitant]
     Indication: PRURITUS
     Dosage: 6MG PER DAY
     Route: 048
     Dates: start: 20041009
  7. MUCOSTA [Concomitant]
     Indication: GASTRIC ULCER HAEMORRHAGE
     Dosage: 3.6G PER DAY
     Route: 048
     Dates: start: 20020914
  8. MALFA [Concomitant]
     Indication: GASTRIC ULCER HAEMORRHAGE
     Dosage: 3.6G PER DAY
     Route: 048
     Dates: start: 20040701
  9. HALCION [Concomitant]
     Indication: INSOMNIA
     Dosage: .5MG PER DAY
     Route: 048
  10. EURODIN [Concomitant]
     Indication: INSOMNIA
     Dosage: 4MG PER DAY
     Route: 048
     Dates: start: 20030508
  11. SHAKUYAKU-KANZO-TO [Concomitant]
     Indication: MUSCLE CRAMP
     Dosage: 7.5MG PER DAY
     Route: 048
     Dates: start: 20040821
  12. NORVASC [Concomitant]
     Indication: HYPERTENSION
     Dosage: 10MG PER DAY
     Route: 048
     Dates: start: 20041028, end: 20041029
  13. ARTIST [Concomitant]
     Indication: HYPERTENSION
     Dosage: 20MG PER DAY
     Route: 048
     Dates: start: 20041030

REACTIONS (3)
  - ENCEPHALOPATHY [None]
  - GAIT DISTURBANCE [None]
  - SPEECH DISORDER [None]
